FAERS Safety Report 13619193 (Version 3)
Quarter: 2017Q3

REPORT INFORMATION
  Report Type: Spontaneous
  Country: JP (occurrence: JP)
  Receive Date: 20170606
  Receipt Date: 20170822
  Transmission Date: 20171127
  Serious: Yes (Death, Life-Threatening, Hospitalization, Other)
  Sender: FDA-Public Use
  Company Number: JP-BAYER-2017-104999

PATIENT
  Age: 70 Year
  Sex: Male
  Weight: 67 kg

DRUGS (10)
  1. XARELTO [Suspect]
     Active Substance: RIVAROXABAN
     Indication: CEREBELLAR INFARCTION
     Dosage: 10 MG, QOD
     Route: 048
     Dates: start: 20170601, end: 20170601
  2. CARVEDILOL. [Concomitant]
     Active Substance: CARVEDILOL
     Indication: MYOCARDIAL INFARCTION
     Dosage: 5MG DAILY
     Route: 048
     Dates: end: 20170601
  3. GLIMEPIRIDE. [Concomitant]
     Active Substance: GLIMEPIRIDE
     Indication: DIABETES MELLITUS
     Dosage: 1 MG, QD
     Route: 048
     Dates: end: 20170601
  4. BAYASPIRIN 100 MG [Suspect]
     Active Substance: ASPIRIN
     Indication: ATRIAL FIBRILLATION
     Dosage: 100 MG, QD
     Route: 048
     Dates: end: 20170601
  5. XARELTO [Suspect]
     Active Substance: RIVAROXABAN
     Indication: ATRIAL FIBRILLATION
     Dosage: 10 MG, QOD
     Route: 048
     Dates: start: 20160114, end: 20170531
  6. FUROSEMID [Concomitant]
     Active Substance: FUROSEMIDE
     Indication: MYOCARDIAL INFARCTION
     Dosage: 20 MG, QD
     Route: 048
     Dates: end: 20170601
  7. CILNIDIPINE [Concomitant]
     Active Substance: CILNIDIPINE
     Indication: HYPERTENSION
     Dosage: 20MG DAILY
     Route: 048
     Dates: start: 20101216, end: 20170601
  8. CRESTOR [Concomitant]
     Active Substance: ROSUVASTATIN CALCIUM
     Indication: DYSLIPIDAEMIA
     Dosage: 5 MG, QD
     Route: 048
     Dates: end: 20170601
  9. RABEPRAZOLE [Concomitant]
     Active Substance: RABEPRAZOLE
     Indication: PROPHYLAXIS AGAINST GASTROINTESTINAL ULCER
     Dosage: 10 MG, QD
     Route: 048
     Dates: end: 20170601
  10. AZILSARTAN [Concomitant]
     Active Substance: AZILSARTAN KAMEDOXOMIL
     Indication: HYPERTENSION
     Dosage: 40 MG, QD
     Route: 048
     Dates: start: 20140213, end: 20170601

REACTIONS (10)
  - Pneumonia [Fatal]
  - Nausea [Fatal]
  - Embolic cerebral infarction [None]
  - Cardiac arrest [Fatal]
  - Respiratory arrest [None]
  - Gingival bleeding [None]
  - Headache [Fatal]
  - Cardiac arrest [None]
  - Haemorrhagic cerebral infarction [Fatal]
  - Inappropriate schedule of drug administration [None]

NARRATIVE: CASE EVENT DATE: 20170529
